FAERS Safety Report 10181609 (Version 1)
Quarter: 2014Q2

REPORT INFORMATION
  Report Type: Spontaneous
  Country: US (occurrence: US)
  Receive Date: 20140519
  Receipt Date: 20140519
  Transmission Date: 20141212
  Serious: Yes (Hospitalization)
  Sender: FDA-Public Use
  Company Number: US-GILEAD-2014-0102817

PATIENT
  Sex: Female

DRUGS (1)
  1. LETAIRIS [Suspect]
     Indication: PRODUCT USED FOR UNKNOWN INDICATION
     Dosage: 10 MG, QD
     Route: 065
     Dates: start: 20140425

REACTIONS (6)
  - Diarrhoea [Unknown]
  - Chills [Unknown]
  - Dyskinesia [Unknown]
  - Dyspnoea [Unknown]
  - Swelling [Unknown]
  - Dizziness [Unknown]
